FAERS Safety Report 7436345-0 (Version None)
Quarter: 2011Q2

REPORT INFORMATION
  Report Type: 
  Country: None (occurrence: None)
  Receive Date: 20110426
  Receipt Date: 20110414
  Transmission Date: 20111010
  Serious: No
  Sender: FDA-Public Use
  Company Number: US-BIOGENIDEC-2010BI022754

PATIENT
  Age: 48 Year
  Sex: Female

DRUGS (1)
  1. TYSABRI [Suspect]
     Indication: MULTIPLE SCLEROSIS
     Route: 042
     Dates: start: 20100114

REACTIONS (12)
  - EYE MOVEMENT DISORDER [None]
  - MEMORY IMPAIRMENT [None]
  - FALL [None]
  - BALANCE DISORDER [None]
  - DYSGRAPHIA [None]
  - SKIN INJURY [None]
  - MOBILITY DECREASED [None]
  - HEAD INJURY [None]
  - NAUSEA [None]
  - FATIGUE [None]
  - DIPLOPIA [None]
  - MUSCLE SPASMS [None]
